FAERS Safety Report 5305549-5 (Version None)
Quarter: 2007Q2

REPORT INFORMATION
  Report Type: 
  Country: None (occurrence: None)
  Receive Date: 20070424
  Receipt Date: 20070423
  Transmission Date: 20071010
  Serious: Yes (Hospitalization, Other)
  Sender: FDA-Public Use
  Company Number: US-BRISTOL-MYERS SQUIBB COMPANY-13685300

PATIENT
  Age: 69 Year
  Sex: Female

DRUGS (11)
  1. CYTOXAN [Suspect]
     Indication: BREAST CANCER
     Route: 042
     Dates: start: 20061218, end: 20061218
  2. ADRIAMYCIN PFS [Suspect]
     Indication: BREAST CANCER
     Route: 042
     Dates: start: 20061218, end: 20061218
  3. BEVACIZUMAB [Suspect]
     Indication: BREAST CANCER
     Route: 042
     Dates: start: 20061218, end: 20061218
  4. NEULASTA [Suspect]
     Indication: COLONY STIMULATING FACTOR PROPHYLAXIS
     Route: 058
     Dates: start: 20061219, end: 20061219
  5. ELAVIL [Concomitant]
     Indication: NEUROPATHY
     Route: 048
  6. SYNTHROID [Concomitant]
     Indication: HYPOTHYROIDISM
     Route: 048
  7. XANAX [Concomitant]
     Indication: ANXIETY
     Route: 048
  8. ZANTAC [Concomitant]
     Indication: GASTROOESOPHAGEAL REFLUX DISEASE
     Route: 048
  9. LOPRESSOR [Concomitant]
     Indication: HYPERTENSION
     Route: 048
  10. ZOFRAN [Concomitant]
     Indication: NAUSEA
     Route: 048
  11. ZOCOR [Concomitant]
     Indication: HYPERLIPIDAEMIA
     Route: 048

REACTIONS (7)
  - ANAEMIA [None]
  - FEBRILE NEUTROPENIA [None]
  - HEADACHE [None]
  - HYPOXIA [None]
  - NAUSEA [None]
  - THROMBOCYTOPENIA [None]
  - VOMITING [None]
